FAERS Safety Report 24977553 (Version 1)
Quarter: 2025Q1

REPORT INFORMATION
  Report Type: Spontaneous
  Country: US (occurrence: US)
  Receive Date: 20250217
  Receipt Date: 20250217
  Transmission Date: 20250408
  Serious: No
  Sender: MERCK SHARP & DOHME LLC
  Company Number: US-009507513-2253933

PATIENT
  Age: 77 Year
  Sex: Female

DRUGS (4)
  1. DIFICID [Suspect]
     Active Substance: FIDAXOMICIN
     Dosage: 2 TABLETS A DAY FOR 10 DAYS
     Dates: start: 20250204
  2. ELIQUIS [Concomitant]
     Active Substance: APIXABAN
  3. METOPROLOL [Concomitant]
     Active Substance: METOPROLOL
  4. TELMISARTAN [Concomitant]
     Active Substance: TELMISARTAN

REACTIONS (2)
  - White blood cell count decreased [Unknown]
  - Red blood cell count decreased [Unknown]

NARRATIVE: CASE EVENT DATE: 20250101
